FAERS Safety Report 8772608 (Version 1)
Quarter: 2012Q4

REPORT INFORMATION
  Report Type: 
  Country: US (occurrence: US)
  Receive Date: 20120905
  Receipt Date: 20120905
  Transmission Date: 20130627
  Serious: No
  Sender: FDA-Public Use
  Company Number: US-009507513-1208USA008519

PATIENT

DRUGS (3)
  1. MIRALAX [Suspect]
     Indication: CONSTIPATION
     Dosage: UNK, Unknown
     Route: 048
  2. MIRALAX [Suspect]
     Indication: MEDICAL OBSERVATION
  3. BENEFIBER [Suspect]
     Indication: CONSTIPATION
     Dosage: UNK, qid
     Route: 065

REACTIONS (1)
  - Unevaluable event [Unknown]
